FAERS Safety Report 14901608 (Version 4)
Quarter: 2018Q2

REPORT INFORMATION
  Report Type: Spontaneous
  Country: US (occurrence: US)
  Receive Date: 20180516
  Receipt Date: 20180608
  Transmission Date: 20180711
  Serious: Yes (Hospitalization, Other)
  Sender: FDA-Public Use
  Company Number: US-UNITED THERAPEUTICS-UNT-2018-006741

PATIENT
  Age: 78 Year
  Sex: Female
  Weight: 99.77 kg

DRUGS (2)
  1. REMODULIN [Suspect]
     Active Substance: TREPROSTINIL
     Indication: PULMONARY ARTERIAL HYPERTENSION
     Dosage: 0.039 ?G/KG, CONTINUING
     Route: 058
     Dates: start: 20100729
  2. REVATIO [Concomitant]
     Active Substance: SILDENAFIL CITRATE
     Indication: PRODUCT USED FOR UNKNOWN INDICATION
     Dosage: UNK
     Route: 065

REACTIONS (4)
  - Pleural effusion [Unknown]
  - Dyspnoea [Unknown]
  - Pericardial effusion [Unknown]
  - Fluid overload [Not Recovered/Not Resolved]

NARRATIVE: CASE EVENT DATE: 20180514
